FAERS Safety Report 11544634 (Version 1)
Quarter: 2015Q3

REPORT INFORMATION
  Report Type: Report from Study
  Country: US (occurrence: US)
  Receive Date: 20150924
  Receipt Date: 20150924
  Transmission Date: 20151125
  Serious: Yes (Other)
  Sender: FDA-Public Use
  Company Number: US-AMGEN-USASL2015096478

PATIENT
  Age: 54 Year
  Sex: Female

DRUGS (3)
  1. ENBREL [Suspect]
     Active Substance: ETANERCEPT
     Indication: RHEUMATOID ARTHRITIS
     Dosage: 50 MG, QWK
     Route: 065
     Dates: start: 200307
  2. PREDNISONE. [Concomitant]
     Active Substance: PREDNISONE
  3. METHOTREXATE [Concomitant]
     Active Substance: METHOTREXATE
     Dosage: UNK

REACTIONS (12)
  - Cough [Recovered/Resolved]
  - Arthralgia [Unknown]
  - Injection site pain [Unknown]
  - Hyperparathyroidism [Unknown]
  - Foot fracture [Unknown]
  - Parathyroidectomy [Unknown]
  - Bronchitis [Recovered/Resolved]
  - Osteoporosis [Unknown]
  - Upper limb fracture [Unknown]
  - Therapeutic response decreased [Unknown]
  - Rib fracture [Recovered/Resolved]
  - Ankle fracture [Unknown]

NARRATIVE: CASE EVENT DATE: 2011
